FAERS Safety Report 11136787 (Version 1)
Quarter: 2015Q2

REPORT INFORMATION
  Report Type: Spontaneous
  Country: KR (occurrence: KR)
  Receive Date: 20150526
  Receipt Date: 20150526
  Transmission Date: 20150821
  Serious: Yes (Other)
  Sender: FDA-Public Use
  Company Number: KR-OTSUKA-2015_001717

PATIENT

DRUGS (2)
  1. DACOGEN [Suspect]
     Active Substance: DECITABINE
     Indication: ACUTE MYELOID LEUKAEMIA
     Dosage: 20 MG/M2, UNK
     Route: 042
     Dates: start: 201504, end: 2015
  2. DACOGEN [Suspect]
     Active Substance: DECITABINE
     Dosage: 20 MG/M2, UNK
     Route: 042
     Dates: start: 201505

REACTIONS (1)
  - Tumour lysis syndrome [Recovered/Resolved]
